FAERS Safety Report 23161817 (Version 1)
Quarter: 2023Q4

REPORT INFORMATION
  Report Type: Spontaneous
  Country: GR (occurrence: GR)
  Receive Date: 20231108
  Receipt Date: 20231108
  Transmission Date: 20240109
  Serious: Yes (Other)
  Sender: FDA-Public Use
  Company Number: None

PATIENT
  Age: 67 Year
  Sex: Female
  Weight: 64 kg

DRUGS (6)
  1. EZETIMIBE [Suspect]
     Active Substance: EZETIMIBE
     Indication: Primary hypercholesterolaemia
     Dates: start: 20230801, end: 20230901
  2. SIMVASTATIN [Suspect]
     Active Substance: SIMVASTATIN
     Indication: Product used for unknown indication
     Dates: start: 20170901, end: 20171001
  3. ROSUVASTATIN [Suspect]
     Active Substance: ROSUVASTATIN
     Indication: Primary hypercholesterolaemia
     Dates: start: 20191001, end: 20191101
  4. ATORVASTATIN [Suspect]
     Active Substance: ATORVASTATIN
     Indication: Primary hypercholesterolaemia
     Dates: start: 20190301, end: 20190401
  5. PITAVASTATIN [Suspect]
     Active Substance: PITAVASTATIN
     Indication: Primary hypercholesterolaemia
     Dates: start: 20150101, end: 20150201
  6. PRAVASTATIN [Suspect]
     Active Substance: PRAVASTATIN
     Indication: Primary hypercholesterolaemia
     Dates: start: 20141001, end: 20141101

REACTIONS (12)
  - Myalgia [Recovered/Resolved]
  - Muscle spasms [Recovered/Resolved]
  - Muscle spasms [Recovered/Resolved]
  - Muscle spasms [Recovered/Resolved]
  - Myalgia [Recovered/Resolved]
  - Myalgia [Recovered/Resolved]
  - Muscle spasms [Recovered/Resolved]
  - Myalgia [Recovered/Resolved]
  - Myalgia [Recovered/Resolved]
  - Myalgia [Recovered/Resolved]
  - Muscle spasms [Recovered/Resolved]
  - Muscle spasms [Recovered/Resolved]

NARRATIVE: CASE EVENT DATE: 20141101
